FAERS Safety Report 7792840-6 (Version None)
Quarter: 2011Q3

REPORT INFORMATION
  Report Type: 
  Country: None (occurrence: None)
  Receive Date: 20110930
  Receipt Date: 20110930
  Transmission Date: 20111222
  Serious: No
  Sender: FDA-Public Use
  Company Number: None

PATIENT
  Sex: Male

DRUGS (1)
  1. LANTUS [Suspect]

REACTIONS (3)
  - METASTASES TO BONE [None]
  - BLADDER CANCER RECURRENT [None]
  - RENAL CANCER METASTATIC [None]
